FAERS Safety Report 5407463-3 (Version None)
Quarter: 2007Q3

REPORT INFORMATION
  Report Type: 
  Country: None (occurrence: None)
  Receive Date: 20070803
  Receipt Date: 20070719
  Transmission Date: 20080115
  Serious: Yes (Life-Threatening)
  Sender: FDA-Public Use
  Company Number: 2007001324

PATIENT
  Age: 66 Year
  Sex: Male

DRUGS (6)
  1. ERLOTINIB (TABLET) [Suspect]
     Indication: PANCREATIC CARCINOMA METASTATIC
     Dosage: (QD), ORAL
     Route: 048
     Dates: start: 20060524, end: 20060718
  2. BEVACIZUMAB (INJECTION FOR INFUSION) [Suspect]
     Indication: PANCREATIC CARCINOMA METASTATIC
     Dosage: (Q2W), INTRAVENOUS
     Route: 042
     Dates: start: 20060524, end: 20060622
  3. GEMCITABINE [Suspect]
     Indication: PANCREATIC CARCINOMA METASTATIC
     Dosage: 1860 MG (QW), INTRAVENOUS
     Route: 042
     Dates: start: 20060524, end: 20060629
  4. LANSOPRAZOLE [Concomitant]
  5. CO-CODAMOL (PANADEINE CO) [Concomitant]
  6. METOCLOPRAMIDE [Concomitant]

REACTIONS (2)
  - INTERNATIONAL NORMALISED RATIO DECREASED [None]
  - PULMONARY EMBOLISM [None]
